FAERS Safety Report 17299044 (Version 2)
Quarter: 2020Q4

REPORT INFORMATION
  Report Type: Report from Study
  Country: FR (occurrence: FR)
  Receive Date: 20200121
  Receipt Date: 20201007
  Transmission Date: 20210113
  Serious: Yes (Life-Threatening, Hospitalization, Other)
  Sender: FDA-Public Use
  Company Number: FR-PFIZER INC-2020026600

PATIENT
  Age: 26 Year
  Sex: Female
  Weight: 77 kg

DRUGS (8)
  1. METHOTREXATE SODIUM. [Suspect]
     Active Substance: METHOTREXATE SODIUM
     Indication: OSTEOSARCOMA
     Dosage: 2.5 MG, CYCLIC CUMULATIVE DOSE SINCE THE 1ST ADMINISTRATION WAS 40MG
     Route: 048
     Dates: start: 20191106, end: 20191203
  2. RAPAMUNE [Suspect]
     Active Substance: SIROLIMUS
     Indication: OSTEOSARCOMA
     Dosage: 4 MG, CYCLIC CUMULATIVE DOSE SINCE THE 1ST ADMINISTRATION WAS 88MG
     Route: 048
     Dates: start: 20191106, end: 20191128
  3. PANTOPRAZOLE [Concomitant]
     Active Substance: PANTOPRAZOLE
     Dosage: 40 MG
     Route: 065
  4. PARACETAMOL [Concomitant]
     Active Substance: ACETAMINOPHEN
     Dosage: 1 G
     Route: 065
  5. ENDOXAN [CYCLOPHOSPHAMIDE] [Suspect]
     Active Substance: CYCLOPHOSPHAMIDE
     Indication: OSTEOSARCOMA
     Dosage: 50 MG, CYCLIC CUMULATIVE DOSE SINCE THE 1ST ADMINISTRATION WAS 140MG
     Route: 048
     Dates: start: 20191106, end: 20191127
  6. NEFOPAM HYDROCHLORIDE [Concomitant]
     Active Substance: NEFOPAM HYDROCHLORIDE
     Dosage: 20 MG
     Route: 065
  7. ZOMETA [Suspect]
     Active Substance: ZOLEDRONIC ACID
     Indication: OSTEOSARCOMA
     Dosage: 4 MG, CYCLIC
     Route: 042
     Dates: start: 20191106, end: 20191204
  8. IBUPROFEN. [Concomitant]
     Active Substance: IBUPROFEN
     Dosage: 400 MG
     Route: 065

REACTIONS (16)
  - Catheter site inflammation [Unknown]
  - Anal fistula [Unknown]
  - Lung abscess [Unknown]
  - Lymphopenia [Unknown]
  - Pyrexia [Unknown]
  - Septic shock [Recovered/Resolved with Sequelae]
  - Aspartate aminotransferase increased [Unknown]
  - Asthenia [Unknown]
  - Dyspnoea [Unknown]
  - Diarrhoea [Unknown]
  - Blood lactate dehydrogenase increased [Unknown]
  - C-reactive protein increased [Unknown]
  - Blood alkaline phosphatase increased [Unknown]
  - Alanine aminotransferase increased [Unknown]
  - Hypotension [Unknown]
  - Proctalgia [Unknown]

NARRATIVE: CASE EVENT DATE: 20191202
